FAERS Safety Report 7068709-1 (Version None)
Quarter: 2010Q4

REPORT INFORMATION
  Report Type: 
  Country: None (occurrence: None)
  Receive Date: 20101028
  Receipt Date: 20101014
  Transmission Date: 20110411
  Serious: Yes (Other)
  Sender: FDA-Public Use
  Company Number: SE-PFIZER INC-2010130922

PATIENT
  Sex: Female

DRUGS (1)
  1. TERRA-CORTRIL [Suspect]
     Indication: ECZEMA
     Dosage: UNK
     Dates: start: 20101009

REACTIONS (2)
  - DEAFNESS [None]
  - TINNITUS [None]
